FAERS Safety Report 17389337 (Version 1)
Quarter: 2020Q1

REPORT INFORMATION
  Report Type: Report from Study
  Country: CA (occurrence: CA)
  Receive Date: 20200207
  Receipt Date: 20200207
  Transmission Date: 20200409
  Serious: Yes (Other)
  Sender: FDA-Public Use
  Company Number: CA-ASTELLAS-2020US004094

PATIENT
  Age: 25 Year
  Sex: Male

DRUGS (3)
  1. SOLIFENACIN [Suspect]
     Active Substance: SOLIFENACIN
     Indication: PRODUCT USED FOR UNKNOWN INDICATION
     Dosage: 0.5 MG, UNKNOWN FREQ.
     Route: 065
  2. DETROL [Suspect]
     Active Substance: TOLTERODINE TARTRATE
     Indication: HYPERTONIC BLADDER
     Dosage: UNK UNK, UNKNOWN FREQ.
     Route: 065
  3. FINGOLIMOD HYDROCHLORIDE [Suspect]
     Active Substance: FINGOLIMOD HYDROCHLORIDE
     Indication: PRODUCT USED FOR UNKNOWN INDICATION
     Dosage: 0.5 MG, UNKNOWN FREQ.
     Route: 048

REACTIONS (5)
  - Autism spectrum disorder [Recovered/Resolved]
  - Visual acuity reduced [Recovered/Resolved]
  - Potentiating drug interaction [Recovered/Resolved]
  - Hypertonic bladder [Recovered/Resolved]
  - Electrocardiogram QT prolonged [Recovered/Resolved]
